FAERS Safety Report 9796905 (Version 1)
Quarter: 2014Q1

REPORT INFORMATION
  Report Type: Spontaneous
  Country: US (occurrence: US)
  Receive Date: 20140104
  Receipt Date: 20140104
  Transmission Date: 20141002
  Serious: Yes (Death, Other)
  Sender: FDA-Public Use
  Company Number: US-UCBSA-107684

PATIENT
  Age: 42 Year
  Sex: Male

DRUGS (5)
  1. ALPRAZOLAM [Suspect]
     Dosage: ROUTE: INGESTION + UNKNOWN
  2. ACETAMINOPHEN/HYDROCODONE [Suspect]
     Dosage: ROUTE: INGESTION + UNKNOWN
  3. OXYCODONE [Suspect]
     Dosage: ROUTE: INGESTION + UNKNOWN
  4. HYDROMORPHONE [Suspect]
     Dosage: ROUTE: INGESTION + UNKNOWN
  5. DIAZEPAM [Suspect]
     Dosage: ROUTE: INGESTION + UNKNOWN

REACTIONS (1)
  - Drug abuse [Fatal]
